FAERS Safety Report 4972848-6 (Version None)
Quarter: 2006Q2

REPORT INFORMATION
  Report Type: 
  Country: None (occurrence: None)
  Receive Date: 20060414
  Receipt Date: 20060406
  Transmission Date: 20061013
  Serious: Yes (Other)
  Sender: FDA-Public Use
  Company Number: US-JNJFOC-20060401561

PATIENT
  Sex: Female

DRUGS (25)
  1. REMICADE [Suspect]
     Indication: RHEUMATOID ARTHRITIS
     Route: 042
  2. COLACE [Concomitant]
  3. DOXAPIN [Concomitant]
  4. FOLIC ACID [Concomitant]
  5. LANOXIN [Concomitant]
  6. LEVOXYL [Concomitant]
  7. METHOTREXATE [Concomitant]
  8. MS CONTIN [Concomitant]
  9. PLAQUENIL [Concomitant]
  10. PREDNISONE 50MG TAB [Concomitant]
  11. PRILOSEC [Concomitant]
  12. SKELAXIN [Concomitant]
  13. TOPROL-XL [Concomitant]
  14. NEXIUM [Concomitant]
  15. VAGIFEM [Concomitant]
  16. FIBERCON [Concomitant]
  17. GABITRIL [Concomitant]
  18. MULTI-VITAMIN [Concomitant]
  19. MULTI-VITAMIN [Concomitant]
  20. MULTI-VITAMIN [Concomitant]
  21. MULTI-VITAMIN [Concomitant]
  22. MULTI-VITAMIN [Concomitant]
  23. MULTI-VITAMIN [Concomitant]
  24. MULTI-VITAMIN [Concomitant]
  25. MULTI-VITAMIN [Concomitant]

REACTIONS (1)
  - BASAL CELL CARCINOMA [None]
